FAERS Safety Report 21490438 (Version 1)
Quarter: 2022Q4

REPORT INFORMATION
  Report Type: Spontaneous
  Country: US (occurrence: None)
  Receive Date: 20221021
  Receipt Date: 20221021
  Transmission Date: 20230112
  Serious: No
  Sender: FDA-Public Use
  Company Number: US-SUPERNUS Pharmaceuticals, Inc.-SUP202208-002659

PATIENT
  Age: 17 Year

DRUGS (5)
  1. QELBREE [Suspect]
     Active Substance: VILOXAZINE HYDROCHLORIDE
     Indication: Product used for unknown indication
     Dosage: 400 MG
  2. ZYPREXA [Concomitant]
     Active Substance: OLANZAPINE
     Indication: Psychotic disorder
  3. ZYPREXA [Concomitant]
     Active Substance: OLANZAPINE
     Indication: Affective disorder
  4. LAMICTAL [Concomitant]
     Active Substance: LAMOTRIGINE
     Indication: Affective disorder
  5. LAMICTAL [Concomitant]
     Active Substance: LAMOTRIGINE
     Indication: Psychotic disorder

REACTIONS (2)
  - Seizure [Unknown]
  - Drug interaction [Unknown]
